FAERS Safety Report 9528229 (Version 1)
Quarter: 2013Q1

REPORT INFORMATION
  Report Type: Spontaneous
  Country: US (occurrence: None)
  Receive Date: 20130314
  Receipt Date: 20130314
  Transmission Date: 20140127
  Serious: No
  Sender: FDA-Public Use
  Company Number: 1208USA003516

PATIENT
  Age: 60 Year
  Sex: Female

DRUGS (3)
  1. PEG-INTRON (PEGINTERFERON ALFA-2B) POWDER FOR INJECTION [Suspect]
     Indication: HEPATITIS C
     Route: 048
     Dates: start: 1986
  2. RIBAVIRIN (RIBAVIRIN) CAPSULE [Suspect]
     Dates: start: 20120730, end: 20121030
  3. VICTRELIS (BOCEPREVIR) CAPSULE [Suspect]
     Indication: HEPATITIS C
     Route: 048
     Dates: start: 20120827, end: 20121030

REACTIONS (14)
  - White blood cell count decreased [None]
  - Fatigue [None]
  - Asthenia [None]
  - Drug ineffective [None]
  - Headache [None]
  - Pain [None]
  - Memory impairment [None]
  - Confusional state [None]
  - Myalgia [None]
  - Red blood cell count decreased [None]
  - Drug dose omission [None]
  - Hepatitis C RNA fluctuation [None]
  - Influenza [None]
  - Fatigue [None]
